FAERS Safety Report 10173331 (Version 1)
Quarter: 2014Q2

REPORT INFORMATION
  Report Type: Spontaneous
  Country: US (occurrence: US)
  Receive Date: 20140515
  Receipt Date: 20140515
  Transmission Date: 20141212
  Serious: No
  Sender: FDA-Public Use
  Company Number: US-PFIZER INC-2014131863

PATIENT
  Age: 76 Year
  Sex: 0

DRUGS (9)
  1. CALAN SR [Suspect]
     Dosage: 240 MG, 1X/DAY
     Route: 048
     Dates: start: 20140505
  2. LIPITOR [Suspect]
     Dosage: 20 MG, 1X/DAY
     Route: 048
     Dates: start: 20140505
  3. LIPITOR [Suspect]
     Dosage: 40 MG, UNK
  4. PROTONIX [Suspect]
     Dosage: 40 MG, 1X/DAY
     Route: 048
     Dates: start: 20140505
  5. LISINOPRIL [Suspect]
     Dosage: 20 MG, 1X/DAY
     Route: 048
     Dates: start: 20140505
  6. ASPIRIN [Suspect]
     Dosage: 81 MG, UNK
  7. MAXZIDE [Suspect]
     Dosage: 1 DF, DAILY
     Route: 048
     Dates: start: 20140505
  8. MAXZIDE [Suspect]
     Dosage: 25 MG, UNK
  9. ACETAMINOPHEN [Suspect]
     Dosage: 500 MG, UNK

REACTIONS (1)
  - Drug hypersensitivity [Unknown]
